FAERS Safety Report 7531321-1 (Version None)
Quarter: 2011Q2

REPORT INFORMATION
  Report Type: 
  Country: None (occurrence: None)
  Receive Date: 20110531
  Receipt Date: 20110519
  Transmission Date: 20111010
  Serious: Yes (Hospitalization)
  Sender: FDA-Public Use
  Company Number: 1000021155

PATIENT
  Age: 23 Year
  Sex: Male

DRUGS (2)
  1. ESCITALOPRAM [Suspect]
     Dosage: 20 MG (20 MG, 1 IN 1 D), ORAL
     Route: 048
     Dates: start: 20100901, end: 20110201
  2. ZYPREXA [Suspect]
     Indication: PSYCHOTIC DISORDER
     Dosage: 20 MG (10 MG, 2 IN 1 D), ORAL
     Route: 048
     Dates: start: 20100901, end: 20110201

REACTIONS (6)
  - SLEEP DISORDER [None]
  - HYPERHIDROSIS [None]
  - WITHDRAWAL SYNDROME [None]
  - AGITATION [None]
  - NAUSEA [None]
  - TREATMENT NONCOMPLIANCE [None]
